FAERS Safety Report 7861743-0 (Version None)
Quarter: 2011Q4

REPORT INFORMATION
  Report Type: 
  Country: None (occurrence: None)
  Receive Date: 20111027
  Receipt Date: 20111013
  Transmission Date: 20120403
  Serious: Yes (Hospitalization)
  Sender: FDA-Public Use
  Company Number: FR-ROCHE-1004505

PATIENT
  Age: 82 Year
  Sex: Female

DRUGS (13)
  1. HYDREA [Concomitant]
     Route: 065
  2. DEXERYL (FRANCE) [Concomitant]
     Route: 065
  3. ACETAMINOPHEN [Concomitant]
     Route: 065
  4. ALDACTONE [Concomitant]
     Route: 065
  5. NEXIUM [Concomitant]
     Route: 065
  6. PREVISCAN [Concomitant]
     Route: 065
  7. EDUCTYL [Concomitant]
     Route: 065
  8. STABLON [Concomitant]
     Route: 065
  9. MORPHINE SULFATE [Concomitant]
     Route: 065
  10. DUPHALAC [Concomitant]
     Route: 065
  11. CLONAZEPAM [Suspect]
     Indication: PRODUCT USED FOR UNKNOWN INDICATION
     Route: 048
     Dates: start: 20110217, end: 20110221
  12. SKENAN LP [Concomitant]
     Route: 065
  13. LASIX [Concomitant]
     Route: 065

REACTIONS (2)
  - COMA [None]
  - RESPIRATORY FAILURE [None]
